FAERS Safety Report 26161096 (Version 1)
Quarter: 2025Q4

REPORT INFORMATION
  Report Type: Report from Study
  Country: US (occurrence: US)
  Receive Date: 20251216
  Receipt Date: 20251216
  Transmission Date: 20260117
  Serious: Yes (Hospitalization, Other)
  Sender: GILEAD
  Company Number: US-GILEAD-2025-0740335

PATIENT
  Sex: Male

DRUGS (1)
  1. SELADELPAR [Suspect]
     Active Substance: SELADELPAR
     Indication: Primary biliary cholangitis
     Dosage: 10MG CAP | TAKE 1 CAPSULE BY MOUTH ONCE A DAY
     Route: 048

REACTIONS (1)
  - Nephrolithiasis [Unknown]
